FAERS Safety Report 6919789-2 (Version None)
Quarter: 2010Q3

REPORT INFORMATION
  Report Type: 
  Country: None (occurrence: None)
  Receive Date: 20100811
  Receipt Date: 20100805
  Transmission Date: 20110219
  Serious: Yes (Other)
  Sender: FDA-Public Use
  Company Number: JP-SANOFI-AVENTIS-2010SA046717

PATIENT

DRUGS (5)
  1. AMARYL [Suspect]
     Route: 048
     Dates: start: 20090101
  2. ASPIRIN [Suspect]
     Dosage: DOSAGE UNKNOWN
     Route: 048
     Dates: start: 20080101
  3. LIPITOR [Suspect]
     Dosage: DOSAGE UNKNOWN
     Route: 048
     Dates: start: 20080101
  4. RABEPRAZOLE SODIUM [Suspect]
     Dosage: DOSAGE UNKNOWN
     Route: 048
     Dates: start: 20080101
  5. ALL OTHER THERAPEUTIC PRODUCTS [Concomitant]
     Dates: start: 20080101

REACTIONS (1)
  - BLADDER CANCER [None]
